FAERS Safety Report 16904472 (Version 1)
Quarter: 2019Q4

REPORT INFORMATION
  Report Type: Spontaneous
  Country: JP (occurrence: JP)
  Receive Date: 20191010
  Receipt Date: 20191010
  Transmission Date: 20200122
  Serious: Yes (Other)
  Sender: FDA-Public Use
  Company Number: JP-JNJFOC-20191008682

PATIENT
  Age: 69 Year
  Sex: Male

DRUGS (3)
  1. RIVAROXABAN [Suspect]
     Active Substance: RIVAROXABAN
     Indication: ATRIAL FIBRILLATION
     Dosage: 10 MG, QD
     Route: 048
     Dates: end: 20190921
  2. LANSOPRAZOLE. [Concomitant]
     Active Substance: LANSOPRAZOLE
     Route: 065
  3. OLMESARTAN [Concomitant]
     Active Substance: OLMESARTAN
     Route: 065

REACTIONS (1)
  - Duodenal neoplasm [Unknown]
